FAERS Safety Report 21613962 (Version 1)
Quarter: 2022Q4

REPORT INFORMATION
  Report Type: Spontaneous
  Country: US (occurrence: None)
  Receive Date: 20221118
  Receipt Date: 20221118
  Transmission Date: 20230112
  Serious: Yes (Other)
  Sender: FDA-Public Use
  Company Number: 2022A372791

PATIENT
  Sex: Female
  Weight: 54.4 kg

DRUGS (1)
  1. PULMICORT FLEXHALER [Suspect]
     Active Substance: BUDESONIDE
     Indication: Chronic obstructive pulmonary disease
     Dosage: 90 MCG ONE PUFF TWICE A DAY
     Route: 055

REACTIONS (2)
  - Sepsis [Unknown]
  - Rheumatoid arthritis [Not Recovered/Not Resolved]
